FAERS Safety Report 4923871-9 (Version None)
Quarter: 2006Q1

REPORT INFORMATION
  Report Type: 
  Country: None (occurrence: None)
  Receive Date: 20060224
  Receipt Date: 20060224
  Transmission Date: 20060701
  Serious: Yes (Life-Threatening, Hospitalization)
  Sender: FDA-Public Use
  Company Number: None

PATIENT
  Sex: Male
  Weight: 86 kg

DRUGS (8)
  1. MYLOTARG [Suspect]
     Indication: LEUKAEMIA RECURRENT
     Dosage: 18 MG DAY 1 IV
     Route: 042
     Dates: start: 20060131, end: 20060131
  2. URSODIOL [Concomitant]
  3. AMITRIPTYLINE HCL [Concomitant]
  4. FLUCONAZOLE [Concomitant]
  5. CIPRO [Concomitant]
  6. PROTONIX [Concomitant]
  7. VANCOMYCIN [Concomitant]
  8. CEFEPIME [Concomitant]

REACTIONS (1)
  - VENOOCCLUSIVE LIVER DISEASE [None]
